FAERS Safety Report 7470157-7 (Version None)
Quarter: 2011Q2

REPORT INFORMATION
  Report Type: 
  Country: None (occurrence: None)
  Receive Date: 20110510
  Receipt Date: 20110502
  Transmission Date: 20111010
  Serious: Yes (Hospitalization)
  Sender: FDA-Public Use
  Company Number: B0716933A

PATIENT
  Sex: Female

DRUGS (2)
  1. UNKNOWN DRUG [Suspect]
     Route: 048
     Dates: start: 20110306, end: 20110406
  2. PROPAFENONE HCL [Suspect]
     Indication: ATRIAL FIBRILLATION
     Dosage: 650MG PER DAY
     Route: 048
     Dates: start: 20110306, end: 20110406

REACTIONS (2)
  - PALPITATIONS [None]
  - HYPERTENSION [None]
